FAERS Safety Report 17510399 (Version 1)
Quarter: 2020Q1

REPORT INFORMATION
  Report Type: Spontaneous
  Country: US (occurrence: US)
  Receive Date: 20200306
  Receipt Date: 20200306
  Transmission Date: 20200409
  Serious: No
  Sender: FDA-Public Use
  Company Number: US-BRISTOL-MYERS SQUIBB COMPANY-BMS-2020-019648

PATIENT
  Age: 79 Year
  Sex: Male
  Weight: 175 kg

DRUGS (1)
  1. ELIQUIS [Suspect]
     Active Substance: APIXABAN
     Indication: CEREBROVASCULAR ACCIDENT PROPHYLAXIS
     Dosage: UNK UNK, BID
     Route: 048
     Dates: start: 20200202

REACTIONS (3)
  - Dry mouth [Unknown]
  - Abdominal discomfort [Unknown]
  - Gingival pain [Unknown]

NARRATIVE: CASE EVENT DATE: 20200228
